FAERS Safety Report 7303858-1 (Version None)
Quarter: 2011Q1

REPORT INFORMATION
  Report Type: 
  Country: None (occurrence: None)
  Receive Date: 20110221
  Receipt Date: 20110209
  Transmission Date: 20110831
  Serious: Yes (Other)
  Sender: FDA-Public Use
  Company Number: A0914292A

PATIENT
  Age: 31 Year
  Sex: Female

DRUGS (2)
  1. TYKERB [Suspect]
     Indication: BREAST CANCER
     Dosage: 1250MGD PER DAY
     Route: 048
     Dates: start: 20090301
  2. CAPECITABINE [Suspect]
     Indication: BREAST CANCER
     Dosage: 2000MGM2 PER DAY
     Route: 048
     Dates: start: 20090301

REACTIONS (5)
  - PALMAR-PLANTAR ERYTHRODYSAESTHESIA SYNDROME [None]
  - NAUSEA [None]
  - HEPATIC ENZYME INCREASED [None]
  - DIARRHOEA [None]
  - ONYCHOMADESIS [None]
